FAERS Safety Report 8817039 (Version 1)
Quarter: 2012Q4

REPORT INFORMATION
  Report Type: Spontaneous
  Country: US (occurrence: None)
  Receive Date: 20121003
  Receipt Date: 20121003
  Transmission Date: 20130627
  Serious: Yes (Hospitalization)
  Sender: FDA-Public Use
  Company Number: None

PATIENT
  Age: 73 Year
  Sex: Male
  Weight: 101.15 kg

DRUGS (6)
  1. GEMCITABINE [Suspect]
     Route: 042
     Dates: start: 20120830
  2. GEMCITABINE [Suspect]
     Dates: start: 20120913
  3. NEULASTA [Suspect]
     Dosage: 24-48 hr post chemo
     Dates: start: 20120831
  4. NEULASTA [Suspect]
     Dates: start: 20120914
  5. CISPLATIN [Suspect]
     Dates: start: 20120830
  6. CISPLATIN [Suspect]
     Dates: start: 20120913

REACTIONS (1)
  - Renal failure acute [None]
